FAERS Safety Report 17573389 (Version 1)
Quarter: 2020Q1

REPORT INFORMATION
  Report Type: Spontaneous
  Country: FR (occurrence: FR)
  Receive Date: 20200323
  Receipt Date: 20200323
  Transmission Date: 20200409
  Serious: Yes (Hospitalization)
  Sender: FDA-Public Use
  Company Number: FR-ELI_LILLY_AND_COMPANY-FR202003007728

PATIENT
  Age: 78 Year
  Sex: Female

DRUGS (23)
  1. DUOPLAVIN [Concomitant]
     Active Substance: ASPIRIN\CLOPIDOGREL
     Dosage: 1 DOSAGE FORM, DAILY
     Route: 048
  2. SKENAN [Concomitant]
     Active Substance: MORPHINE SULFATE
     Dosage: 1 DOSAGE FORM, UNKNOWN
     Route: 048
  3. INORIAL [Concomitant]
     Active Substance: BILASTINE
     Dosage: 2 DOSAGE FORM, DAILY
     Route: 048
  4. CORTANCYL [Concomitant]
     Active Substance: PREDNISONE
     Route: 048
  5. SPECIAFOLDINE [Concomitant]
     Active Substance: FOLIC ACID
     Dosage: 1 DOSAGE FORM, WEEKLY (1/W)
     Route: 048
  6. XYZALL [Concomitant]
     Active Substance: LEVOCETIRIZINE DIHYDROCHLORIDE
     Dosage: 2 DOSAGE FORM, DAILY
     Route: 048
  7. CALCIDOSE VITAMINE D [Concomitant]
     Active Substance: CALCIUM\CHOLECALCIFEROL
     Dosage: 2 DOSAGE FORM, DAILY
     Route: 048
  8. AMLOR PLUS [AMLODIPINE BESILATE;ATORVASTATIN] [Concomitant]
     Dosage: 1 DOSAGE FORM, DAILY
     Route: 048
  9. LEXOMIL [Concomitant]
     Active Substance: BROMAZEPAM
     Route: 048
  10. SKENAN [Concomitant]
     Active Substance: MORPHINE SULFATE
     Route: 048
  11. MICARDIS [Concomitant]
     Active Substance: TELMISARTAN
     Route: 048
  12. FORSTEO [Suspect]
     Active Substance: TERIPARATIDE
     Indication: OSTEOPOROSIS
     Dosage: 1 DOSAGE FORM, UNKNOWN
     Route: 058
     Dates: start: 20190706, end: 20190706
  13. CRESTOR [Concomitant]
     Active Substance: ROSUVASTATIN CALCIUM
     Route: 048
  14. NORDIMET [METHOTREXATE] [Concomitant]
     Active Substance: METHOTREXATE
     Dosage: 1 DOSAGE FORM, WEEKLY (1/W)
     Route: 058
  15. OGAST [Concomitant]
     Active Substance: LANSOPRAZOLE
     Dosage: 1 DOSAGE FORM, DAILY
     Route: 048
  16. EPINITRIL [Concomitant]
     Active Substance: NITROGLYCERIN
     Route: 062
  17. EFFERALGAN COD. [Concomitant]
     Active Substance: ACETAMINOPHEN\CODEINE PHOSPHATE
     Dosage: 3 DOSAGE FORM, DAILY
     Route: 048
  18. SINGULAIR [Concomitant]
     Active Substance: MONTELUKAST SODIUM
     Dosage: 1 DOSAGE FORM, DAILY
     Route: 048
  19. VENTOLINE ROTACAPS [Concomitant]
     Route: 055
  20. ALVESCO [Concomitant]
     Active Substance: CICLESONIDE
     Route: 055
  21. TEMERIT [Concomitant]
     Active Substance: NEBIVOLOL
     Dosage: 1 DOSAGE FORM, DAILY
     Route: 048
  22. FORMOAIR [Concomitant]
     Route: 055
  23. HUMIRA [Concomitant]
     Active Substance: ADALIMUMAB
     Dosage: NON RENSEIGNEE
     Route: 065

REACTIONS (8)
  - Neck pain [Recovered/Resolved]
  - Incorrect dose administered [Recovered/Resolved]
  - Chest pain [Recovered/Resolved]
  - Nausea [Recovered/Resolved]
  - Hypercalcaemia [Recovered/Resolved]
  - Vomiting [Recovered/Resolved]
  - Burning sensation [Recovered/Resolved]
  - Overdose [Recovered/Resolved]

NARRATIVE: CASE EVENT DATE: 20190706
